FAERS Safety Report 19321764 (Version 2)
Quarter: 2024Q4

REPORT INFORMATION
  Report Type: Spontaneous
  Country: DE (occurrence: DE)
  Receive Date: 20210527
  Receipt Date: 20241125
  Transmission Date: 20250115
  Serious: Yes (Hospitalization, Other)
  Sender: ORGANON
  Company Number: None

PATIENT
  Age: 21 Year
  Sex: Male
  Weight: 70 kg

DRUGS (4)
  1. PROPECIA [Suspect]
     Active Substance: FINASTERIDE
     Indication: Androgenetic alopecia
     Dosage: 1 MG, DAILY
     Route: 048
     Dates: start: 20020701, end: 2006
  2. PROPECIA [Suspect]
     Active Substance: FINASTERIDE
     Dosage: 1 DOSAGE FORM, QD
     Route: 048
     Dates: start: 200204, end: 200606
  3. BUPROPION HYDROCHLORIDE [Suspect]
     Active Substance: BUPROPION HYDROCHLORIDE
     Indication: Depression
     Dosage: UNK
     Route: 065
     Dates: start: 20130205, end: 20130307
  4. BUPROPION HYDROCHLORIDE [Suspect]
     Active Substance: BUPROPION HYDROCHLORIDE
     Dosage: 150 MG, QAM
     Route: 065
     Dates: start: 20160606

REACTIONS (115)
  - Tremor [Unknown]
  - Sensory disturbance [Unknown]
  - Fatigue [Not Recovered/Not Resolved]
  - Muscle atrophy [Not Recovered/Not Resolved]
  - Arthralgia [Not Recovered/Not Resolved]
  - Tinnitus [Not Recovered/Not Resolved]
  - Dry skin [Not Recovered/Not Resolved]
  - Hair texture abnormal [Not Recovered/Not Resolved]
  - Hyperhidrosis [Not Recovered/Not Resolved]
  - Disturbance in attention [Not Recovered/Not Resolved]
  - Acne [Not Recovered/Not Resolved]
  - Somnolence [Not Recovered/Not Resolved]
  - Blepharitis [Not Recovered/Not Resolved]
  - Metal poisoning [Unknown]
  - Suicidal ideation [Unknown]
  - Disturbance in attention [Not Recovered/Not Resolved]
  - Nasal abscess [Unknown]
  - Cognitive disorder [Not Recovered/Not Resolved]
  - Weight decreased [Unknown]
  - Adverse drug reaction [Unknown]
  - Sleep disorder [Not Recovered/Not Resolved]
  - Suicidal ideation [Unknown]
  - Chronic fatigue syndrome [Not Recovered/Not Resolved]
  - Male orgasmic disorder [Unknown]
  - Eczema [Not Recovered/Not Resolved]
  - Sperm concentration decreased [Unknown]
  - Muscular weakness [Not Recovered/Not Resolved]
  - Dizziness [Not Recovered/Not Resolved]
  - Depression [Not Recovered/Not Resolved]
  - Loss of libido [Recovered/Resolved]
  - Erectile dysfunction [Recovered/Resolved]
  - Brain fog [Unknown]
  - Penile pain [Unknown]
  - Anorgasmia [Unknown]
  - Skin discolouration [Unknown]
  - Prostatic pain [Unknown]
  - Sinusitis [Not Recovered/Not Resolved]
  - Anxiety [Unknown]
  - Panic attack [Unknown]
  - Anhedonia [Unknown]
  - Bradyphrenia [Not Recovered/Not Resolved]
  - Mood swings [Unknown]
  - Apathy [Unknown]
  - Memory impairment [Unknown]
  - Disorientation [Unknown]
  - Visual impairment [Unknown]
  - Headache [Unknown]
  - Muscle twitching [Unknown]
  - Serum sickness [Unknown]
  - Skin atrophy [Unknown]
  - Hypotrichosis [Unknown]
  - Alopecia [Unknown]
  - Hair colour changes [Unknown]
  - Dyspepsia [Unknown]
  - Weight increased [Unknown]
  - Palpitations [Unknown]
  - Lipoatrophy [Unknown]
  - Performance status decreased [Unknown]
  - Adrenocorticotropic hormone deficiency [Unknown]
  - Melanocytic naevus [Unknown]
  - Sleep apnoea syndrome [Not Recovered/Not Resolved]
  - Derealisation [Not Recovered/Not Resolved]
  - Gastrointestinal disorder [Not Recovered/Not Resolved]
  - Cardiac murmur [Unknown]
  - Upper respiratory tract infection [Unknown]
  - Bronchitis [Unknown]
  - Nasopharyngitis [Unknown]
  - Sinusitis [Unknown]
  - Nasopharyngitis [Unknown]
  - General physical health deterioration [Unknown]
  - Burnout syndrome [Unknown]
  - Influenza [Recovering/Resolving]
  - Cough [Unknown]
  - Conjunctivitis [Unknown]
  - Localised infection [Unknown]
  - Onychomycosis [Unknown]
  - Visual impairment [Unknown]
  - Autonomic nervous system imbalance [Unknown]
  - Temperature intolerance [Unknown]
  - Hypoaesthesia [Unknown]
  - Gingival disorder [Unknown]
  - Metabolic disorder [Unknown]
  - Diarrhoea [Unknown]
  - Sinusitis [Unknown]
  - Pallor [Unknown]
  - Vitamin D deficiency [Unknown]
  - Iodine deficiency [Unknown]
  - Vitamin K deficiency [Unknown]
  - Hypovitaminosis [Unknown]
  - Feeling abnormal [Unknown]
  - Vision blurred [Unknown]
  - Abdominal pain upper [Unknown]
  - Somatic symptom disorder [Not Recovered/Not Resolved]
  - Dysaesthesia [Unknown]
  - Sinusitis [Unknown]
  - Sinus polyp [Unknown]
  - Thinking abnormal [Unknown]
  - Sinusitis [Unknown]
  - Nasal polyps [Unknown]
  - Lung infiltration [Unknown]
  - Endocrine disorder [Unknown]
  - Genital hypoaesthesia [Unknown]
  - Alopecia [Unknown]
  - Gastrointestinal disorder [Unknown]
  - Confusional state [Unknown]
  - Lethargy [Unknown]
  - Muscle disorder [Not Recovered/Not Resolved]
  - Myalgia [Unknown]
  - Depression [Unknown]
  - Depression [Not Recovered/Not Resolved]
  - Ejaculation failure [Unknown]
  - Ejaculation disorder [Unknown]
  - Testicular pain [Unknown]
  - Rash [Unknown]
  - Fungal infection [Unknown]

NARRATIVE: CASE EVENT DATE: 20020101
